FAERS Safety Report 5026191-X (Version None)
Quarter: 2006Q2

REPORT INFORMATION
  Report Type: 
  Country: None (occurrence: None)
  Receive Date: 20060614
  Receipt Date: 20060605
  Transmission Date: 20061013
  Serious: Yes (Death)
  Sender: FDA-Public Use
  Company Number: US-MERCK-0606USA00654

PATIENT
  Age: 81 Year
  Sex: Female

DRUGS (2)
  1. DECADRON [Suspect]
     Route: 065
  2. THALOMID [Suspect]
     Indication: MULTIPLE MYELOMA
     Route: 048
     Dates: start: 20050707, end: 20051101

REACTIONS (3)
  - BRAIN NEOPLASM [None]
  - DISEASE PROGRESSION [None]
  - MULTIPLE MYELOMA [None]
